FAERS Safety Report 4300110-3 (Version None)
Quarter: 2004Q1

REPORT INFORMATION
  Report Type: 
  Country: None (occurrence: None)
  Receive Date: 20040218
  Receipt Date: 20040204
  Transmission Date: 20041129
  Serious: Yes (Death, Hospitalization)
  Sender: FDA-Public Use
  Company Number: UK033809

PATIENT
  Age: 60 Year
  Sex: Male
  Weight: 75 kg

DRUGS (5)
  1. NEUPOGEN [Suspect]
     Indication: CHEMOTHERAPY
     Dosage: IV
     Route: 042
     Dates: start: 20011023
  2. DOXORUBICIN HCL [Concomitant]
  3. BLEOMYCIN SULFATE [Concomitant]
  4. DACARBAZINE [Concomitant]
  5. VINBLASTINE SULFATE [Concomitant]

REACTIONS (16)
  - CARDIOPULMONARY FAILURE [None]
  - DEEP VEIN THROMBOSIS [None]
  - DIALYSIS [None]
  - DIARRHOEA [None]
  - EJECTION FRACTION DECREASED [None]
  - INFLUENZA [None]
  - INTERSTITIAL LUNG DISEASE [None]
  - LUNG DISORDER [None]
  - MITRAL VALVE INCOMPETENCE [None]
  - MYALGIA [None]
  - ORTHOPNOEA [None]
  - PARAESTHESIA [None]
  - PULMONARY CONGESTION [None]
  - RENAL FAILURE [None]
  - SINUSITIS [None]
  - TACHYPNOEA [None]
